FAERS Safety Report 7217161-1 (Version None)
Quarter: 2011Q1

REPORT INFORMATION
  Report Type: 
  Country: None (occurrence: None)
  Receive Date: 20110110
  Receipt Date: 20101229
  Transmission Date: 20110831
  Serious: Yes (Other)
  Sender: FDA-Public Use
  Company Number: US-PFIZER INC-2010181781

PATIENT
  Sex: Female
  Weight: 74.83 kg

DRUGS (5)
  1. METHADONE HYDROCHLORIDE [Suspect]
     Dosage: 10 MG, Q 12 HRS
     Route: 048
     Dates: start: 20101201
  2. METHYLPREDNISOLONE [Suspect]
     Dosage: 4 MG, 2X/DAY
     Route: 048
     Dates: start: 20101201
  3. FENTANYL [Suspect]
     Indication: FIBROMYALGIA
     Dosage: 50 UG, 1 PATCH Q 72 HRS
     Route: 062
     Dates: start: 20101201
  4. FENTANYL [Suspect]
     Dosage: 1 PATCH Q 72 HRS
     Route: 062
  5. LYRICA [Suspect]
     Indication: NEUROPATHY PERIPHERAL
     Dosage: 50 MG, 2X/DAY
     Route: 048
     Dates: start: 20101201

REACTIONS (9)
  - EYE INJURY [None]
  - LIMB INJURY [None]
  - BALANCE DISORDER [None]
  - HEADACHE [None]
  - FALL [None]
  - HEAD INJURY [None]
  - PAIN [None]
  - DRUG INEFFECTIVE [None]
  - DEPRESSION [None]
